FAERS Safety Report 7583960-X (Version None)
Quarter: 2011Q2

REPORT INFORMATION
  Report Type: 
  Country: None (occurrence: None)
  Receive Date: 20110628
  Receipt Date: 20110628
  Transmission Date: 20111010
  Serious: Yes (Life-Threatening, Hospitalization, Disabling)
  Sender: FDA-Public Use
  Company Number: None

PATIENT
  Age: 39 Year
  Sex: Female
  Weight: 69.5 kg

DRUGS (1)
  1. CONTAC [Suspect]
     Indication: NASOPHARYNGITIS
     Dosage: 1 2 IN 3 DAYS BY MOUTH
     Route: 048
     Dates: start: 20110610, end: 20110612

REACTIONS (5)
  - POST LUMBAR PUNCTURE SYNDROME [None]
  - INSOMNIA [None]
  - DISORIENTATION [None]
  - CONFUSIONAL STATE [None]
  - TREMOR [None]
